FAERS Safety Report 17521232 (Version 1)
Quarter: 2020Q1

REPORT INFORMATION
  Report Type: Spontaneous
  Country: US (occurrence: US)
  Receive Date: 20200302
  Receipt Date: 20200302
  Transmission Date: 20200409
  Serious: Yes (Other)
  Sender: FDA-Public Use
  Company Number: None

PATIENT
  Age: 64 Year
  Sex: Female
  Weight: 74.39 kg

DRUGS (18)
  1. OZEMPIC [Suspect]
     Active Substance: SEMAGLUTIDE
     Indication: DIABETES MELLITUS INADEQUATE CONTROL
     Route: 058
     Dates: start: 20191231, end: 20200302
  2. NEURONTIN [Concomitant]
     Active Substance: GABAPENTIN
  3. FLUTICASONE. [Concomitant]
     Active Substance: FLUTICASONE
  4. METOPROLOL. [Suspect]
     Active Substance: METOPROLOL
  5. BUSPAR [Concomitant]
     Active Substance: BUSPIRONE HYDROCHLORIDE
  6. OMEPRAZOLE. [Concomitant]
     Active Substance: OMEPRAZOLE
  7. EFFEXOR [Concomitant]
     Active Substance: VENLAFAXINE HYDROCHLORIDE
  8. RANEXA [Concomitant]
     Active Substance: RANOLAZINE
  9. VENTOLIN HFA [Concomitant]
     Active Substance: ALBUTEROL SULFATE
  10. NORVASC [Concomitant]
     Active Substance: AMLODIPINE BESYLATE
  11. ABILIFY [Concomitant]
     Active Substance: ARIPIPRAZOLE
  12. LISINOPRIL. [Concomitant]
     Active Substance: LISINOPRIL
  13. MONTELUKAST [Concomitant]
     Active Substance: MONTELUKAST SODIUM
  14. MOBIC [Concomitant]
     Active Substance: MELOXICAM
  15. METFORMIN HCL [Concomitant]
     Active Substance: METFORMIN HYDROCHLORIDE
  16. CLARITIN [Suspect]
     Active Substance: LORATADINE
  17. EUCERIN ORIGINAL LOTION [Concomitant]
  18. OZEMPIC [Concomitant]
     Active Substance: SEMAGLUTIDE

REACTIONS (4)
  - Nausea [None]
  - Abdominal pain upper [None]
  - Amylase increased [None]
  - Lipase increased [None]

NARRATIVE: CASE EVENT DATE: 20200214
